FAERS Safety Report 5488152-6 (Version None)
Quarter: 2007Q4

REPORT INFORMATION
  Report Type: 
  Country: None (occurrence: None)
  Receive Date: 20071001
  Receipt Date: 20070220
  Transmission Date: 20080405
  Serious: Yes (Other)
  Sender: FDA-Public Use
  Company Number: 2007020005

PATIENT
  Age: 22 Year
  Sex: Male

DRUGS (4)
  1. FELBATOL [Suspect]
     Indication: EPILEPSY
     Dosage: 800 MG TID, PO
     Route: 048
     Dates: start: 20061201
  2. DEPAKOTE [Concomitant]
  3. LAMICTAL [Concomitant]
  4. CLONAZEPAM [Concomitant]

REACTIONS (1)
  - NEUTROPENIA [None]
